FAERS Safety Report 8213567-2 (Version None)
Quarter: 2012Q1

REPORT INFORMATION
  Report Type: 
  Country: None (occurrence: None)
  Receive Date: 20120315
  Receipt Date: 20120312
  Transmission Date: 20120608
  Serious: Yes (Death)
  Sender: FDA-Public Use
  Company Number: GB-ASTRAZENECA-2012SE16732

PATIENT
  Age: 51 Year
  Sex: Female

DRUGS (11)
  1. CLONAZEPAM [Concomitant]
  2. FUROSEMIDE [Concomitant]
     Indication: OEDEMA PERIPHERAL
  3. PROMETHAZINE [Concomitant]
  4. RISPERDAL CONSTA [Suspect]
     Indication: BIPOLAR DISORDER
     Route: 030
  5. METFORMIN HCL [Concomitant]
     Indication: DIABETES MELLITUS
     Route: 048
  6. PROCYCLIDINE HYDROCHLORIDE 2MG TAB [Concomitant]
  7. QUETIAPINE [Suspect]
     Indication: BIPOLAR DISORDER
     Route: 048
     Dates: start: 20120213
  8. RISPERDAL CONSTA [Suspect]
     Route: 065
  9. VALPROATE SODIUM [Concomitant]
  10. HALOPERIDOL [Concomitant]
  11. MELATONIN [Concomitant]

REACTIONS (1)
  - PULMONARY EMBOLISM [None]
